FAERS Safety Report 24656676 (Version 1)
Quarter: 2024Q4

REPORT INFORMATION
  Report Type: Report from Study
  Country: CA (occurrence: CA)
  Receive Date: 20241124
  Receipt Date: 20241124
  Transmission Date: 20250114
  Serious: Yes (Other)
  Sender: ABBVIE
  Company Number: CA-ABBVIE-6013370

PATIENT
  Age: 63 Year
  Sex: Female

DRUGS (1)
  1. RINVOQ [Suspect]
     Active Substance: UPADACITINIB
     Indication: Colitis ulcerative
     Dosage: FORM STRENGTH: 45 MILLIGRAM?45MG ONCE A DAY FOR 8 WEEKS THEN 30 MILLIGRAM PER DAY?NOV 2024
     Route: 048
     Dates: start: 20241105

REACTIONS (5)
  - Multiple sclerosis relapse [Unknown]
  - Cough [Unknown]
  - Nasopharyngitis [Unknown]
  - SARS-CoV-2 test positive [Unknown]
  - Sinus congestion [Unknown]

NARRATIVE: CASE EVENT DATE: 20241101
